FAERS Safety Report 22226839 (Version 2)
Quarter: 2023Q2

REPORT INFORMATION
  Report Type: Report from Study
  Country: US (occurrence: US)
  Receive Date: 20230419
  Receipt Date: 20230425
  Transmission Date: 20230722
  Serious: No
  Sender: FDA-Public Use
  Company Number: US-BRISTOL-MYERS SQUIBB COMPANY-2023-055199

PATIENT
  Age: 71 Year
  Sex: Female
  Weight: 108.86 kg

DRUGS (2)
  1. CAMZYOS [Suspect]
     Active Substance: MAVACAMTEN
     Indication: Product used for unknown indication
     Dosage: DOSE : UNAVAILABLE;     FREQ : ONCE DAILY
     Route: 048
  2. CAMZYOS [Suspect]
     Active Substance: MAVACAMTEN
     Dosage: DOSE : UNAVAILABLE;     FREQ : ONCE DAILY
     Route: 048

REACTIONS (5)
  - Mucosal discolouration [Unknown]
  - Sinusitis [Unknown]
  - Urinary tract infection [Unknown]
  - Abscess oral [Unknown]
  - Pain [Unknown]
